FAERS Safety Report 6197718-X (Version None)
Quarter: 2009Q2

REPORT INFORMATION
  Report Type: 
  Country: None (occurrence: None)
  Receive Date: 20090521
  Receipt Date: 20090519
  Transmission Date: 20091009
  Serious: Yes (Hospitalization)
  Sender: FDA-Public Use
  Company Number: DE-PFIZER INC-2009170098

PATIENT
  Age: 61 Year

DRUGS (1)
  1. CLINDAMYCIN HCL [Suspect]
     Indication: OSTEITIS
     Dosage: 600 MG, 3X/DAY
     Route: 048
     Dates: start: 20090101, end: 20090101

REACTIONS (1)
  - TONGUE OEDEMA [None]
